FAERS Safety Report 6028923-0 (Version None)
Quarter: 2009Q1

REPORT INFORMATION
  Report Type: 
  Country: None (occurrence: None)
  Receive Date: 20090106
  Receipt Date: 20081218
  Transmission Date: 20090719
  Serious: Yes (Other)
  Sender: FDA-Public Use
  Company Number: FR-PFIZER INC-2009150601

PATIENT

DRUGS (2)
  1. PREGABALIN [Suspect]
     Indication: NEURALGIA
  2. CLONAZEPAM [Concomitant]

REACTIONS (3)
  - DISTURBANCE IN ATTENTION [None]
  - HAEMATOMA [None]
  - ROAD TRAFFIC ACCIDENT [None]
